FAERS Safety Report 9571347 (Version 2)
Quarter: 2013Q4

REPORT INFORMATION
  Report Type: Spontaneous
  Country: IT (occurrence: IT)
  Receive Date: 20131001
  Receipt Date: 20131008
  Transmission Date: 20140711
  Serious: Yes (Other)
  Sender: FDA-Public Use
  Company Number: IT-RANBAXY-2013RR-73537

PATIENT
  Age: 7 Year
  Sex: Male

DRUGS (1)
  1. PARACETAMOL [Suspect]
     Indication: HYPERPYREXIA
     Dosage: 13 MG/KG (260 MG), BEFORE BEDTIME
     Route: 048

REACTIONS (2)
  - Sleep disorder [Unknown]
  - Delirium [Unknown]
